FAERS Safety Report 8999050 (Version 2)
Quarter: 2013Q1

REPORT INFORMATION
  Report Type: Spontaneous
  Country: US (occurrence: US)
  Receive Date: 20130103
  Receipt Date: 20130109
  Transmission Date: 20140127
  Serious: Yes (Hospitalization)
  Sender: FDA-Public Use
  Company Number: US-BAYER-2012-136454

PATIENT
  Age: 21 Year
  Sex: Female

DRUGS (6)
  1. YASMIN [Suspect]
  2. LEVOTHYROXINE [Concomitant]
     Indication: HYPOTHYROIDISM
     Dosage: 50 ?G, UNK
  3. ALBUTEROL [Concomitant]
     Dosage: 2 PUFFS EVERY 4 HOURS AS NEEDED
  4. IBUPROFEN [Concomitant]
  5. PREDNISONE [Concomitant]
     Dosage: 20 MG, UNK
     Route: 048
  6. AZITHROMYCIN [Concomitant]
     Dosage: 250 MG, UNK
     Route: 048

REACTIONS (1)
  - Pulmonary embolism [None]
